FAERS Safety Report 4515741-5 (Version None)
Quarter: 2004Q4

REPORT INFORMATION
  Report Type: 
  Country: None (occurrence: None)
  Receive Date: 20041122
  Receipt Date: 20041103
  Transmission Date: 20050328
  Serious: Yes (Death, Hospitalization)
  Sender: FDA-Public Use
  Company Number: 601615

PATIENT
  Age: 49 Year
  Sex: Female
  Weight: 56.7 kg

DRUGS (16)
  1. GAMMAGARD S/D [Suspect]
     Indication: HYPOGAMMAGLOBULINAEMIA
     Dosage: 40 MG; Q4W; INTRAVENOUS
     Route: 042
     Dates: start: 20040210, end: 20041004
  2. ESTROGENS [Concomitant]
  3. ULTRAM [Concomitant]
  4. WELLBUTRIN [Concomitant]
  5. CARTIA XT [Concomitant]
  6. MIRAPEX ^PHARMACIA + UPJOHN^ [Concomitant]
  7. NEXIUM [Concomitant]
  8. DIOVAN [Concomitant]
  9. SYNTESTAN [Concomitant]
  10. GUAIFENESIN [Concomitant]
  11. ALLEGRA [Concomitant]
  12. SEREVENT [Concomitant]
  13. TAGAMET [Concomitant]
  14. MULTI-VITAMINS [Concomitant]
  15. ACETAMINOPHEN [Concomitant]
  16. BENADRYL ^WARNER-LAMBERT^ [Concomitant]

REACTIONS (4)
  - BLOOD IMMUNOGLOBULIN G DECREASED [None]
  - RENAL FAILURE [None]
  - SEPSIS [None]
  - URINARY TRACT INFECTION [None]
